FAERS Safety Report 15129144 (Version 2)
Quarter: 2018Q3

REPORT INFORMATION
  Report Type: Spontaneous
  Country: US (occurrence: US)
  Receive Date: 20180711
  Receipt Date: 20180919
  Transmission Date: 20181010
  Serious: No
  Sender: FDA-Public Use
  Company Number: US-PFIZER INC-2018274687

PATIENT
  Age: 11 Year
  Sex: Female
  Weight: 65.31 kg

DRUGS (7)
  1. GENOTROPIN [Suspect]
     Active Substance: SOMATROPIN
     Indication: PRADER-WILLI SYNDROME
     Dosage: 0.625 MG, ONCE DAILY (4:00 PM EVERYDAY)
     Route: 058
  2. GENOTROPIN MQ [Suspect]
     Active Substance: SOMATROPIN
     Indication: PRADER-WILLI SYNDROME
     Dosage: UNK (PROBABLY GETS THE INJECTIONS 5 OUT OF 7 DAYS PER WEEK)
     Route: 058
     Dates: start: 1999
  3. LUVOX [Concomitant]
     Active Substance: FLUVOXAMINE MALEATE
     Indication: OBSESSIVE-COMPULSIVE DISORDER
     Dosage: UNK, 2X/DAY
     Route: 048
     Dates: start: 2014
  4. SEROQUEL [Concomitant]
     Active Substance: QUETIAPINE FUMARATE
     Indication: SLEEP DISORDER
     Dosage: UNK, 1X/DAY (AT NIGHT)
     Route: 048
     Dates: start: 2014
  5. KLONOPIN [Concomitant]
     Active Substance: CLONAZEPAM
     Dosage: 0.5 MG, 2X/DAY
     Route: 048
     Dates: start: 201805
  6. KLONOPIN [Concomitant]
     Active Substance: CLONAZEPAM
     Indication: ANXIETY
     Dosage: 0.5 MG, 1X/DAY (STARTED ABOUT 2 YEARS AGO)
     Route: 048
     Dates: start: 2016
  7. GENOTROPIN MQ [Suspect]
     Active Substance: SOMATROPIN
     Dosage: 0.625 MG, ONCE DAILY (4:00 PM EVERYDAY)
     Route: 058

REACTIONS (2)
  - Intentional dose omission [Unknown]
  - Aggression [Recovering/Resolving]
